FAERS Safety Report 17477824 (Version 1)
Quarter: 2020Q1

REPORT INFORMATION
  Report Type: Report from Study
  Country: JP (occurrence: JP)
  Receive Date: 20200228
  Receipt Date: 20200228
  Transmission Date: 20200409
  Serious: Yes (Other)
  Sender: FDA-Public Use
  Company Number: JP-BAUSCH-BL-2020-006536

PATIENT
  Age: 43 Year
  Sex: Female

DRUGS (1)
  1. LUMICEF [Suspect]
     Active Substance: BRODALUMAB
     Indication: PSORIATIC ARTHROPATHY
     Route: 058

REACTIONS (3)
  - Anti-neutrophil cytoplasmic antibody positive vasculitis [Unknown]
  - Neuropathy peripheral [Unknown]
  - Asthma [Unknown]

NARRATIVE: CASE EVENT DATE: 201912
